FAERS Safety Report 13204499 (Version 1)
Quarter: 2017Q1

REPORT INFORMATION
  Report Type: Spontaneous
  Country: BR (occurrence: BR)
  Receive Date: 20170209
  Receipt Date: 20170209
  Transmission Date: 20170428
  Serious: Yes (Other)
  Sender: FDA-Public Use
  Company Number: PHHY2017BR010679

PATIENT
  Sex: Female
  Weight: 70 kg

DRUGS (7)
  1. TEGRETOL [Suspect]
     Active Substance: CARBAMAZEPINE
     Indication: BIPOLAR DISORDER
     Dosage: 2 DF, QD
     Route: 065
     Dates: start: 1994, end: 2008
  2. TEGRETOL [Suspect]
     Active Substance: CARBAMAZEPINE
     Indication: AFFECTIVE DISORDER
  3. OLCADIL [Suspect]
     Active Substance: CLOXAZOLAM
     Indication: MOOD SWINGS
  4. TEGRETOL [Suspect]
     Active Substance: CARBAMAZEPINE
     Indication: MOOD SWINGS
  5. OLCADIL [Suspect]
     Active Substance: CLOXAZOLAM
     Indication: BIPOLAR DISORDER
     Dosage: UNK
     Route: 065
  6. OLANZAPINE. [Concomitant]
     Active Substance: OLANZAPINE
     Indication: AFFECTIVE DISORDER
     Dosage: 1 DF, QD
     Route: 048
  7. QUETIAPINE. [Concomitant]
     Active Substance: QUETIAPINE
     Indication: AFFECTIVE DISORDER
     Route: 048

REACTIONS (6)
  - Pyelonephritis [Recovering/Resolving]
  - Thrombocytopenia [Recovering/Resolving]
  - Leukopenia [Recovered/Resolved]
  - Depression [Recovering/Resolving]
  - Lethargy [Recovering/Resolving]
  - Weight increased [Recovering/Resolving]
